FAERS Safety Report 18421487 (Version 2)
Quarter: 2020Q4

REPORT INFORMATION
  Report Type: Report from Study
  Country: US (occurrence: US)
  Receive Date: 20201023
  Receipt Date: 20201210
  Transmission Date: 20210114
  Serious: Yes (Hospitalization)
  Sender: FDA-Public Use
  Company Number: US-PUMA BIOTECHNOLOGY, LTD.-2020US001261

PATIENT

DRUGS (4)
  1. IMODIUM [Concomitant]
     Active Substance: LOPERAMIDE HYDROCHLORIDE
     Indication: PROPHYLAXIS AGAINST DIARRHOEA
  2. NERLYNX [Suspect]
     Active Substance: NERATINIB
     Dosage: 240 MG (6 TABLETS), DAILY
     Route: 048
     Dates: start: 20200626
  3. NERLYNX [Suspect]
     Active Substance: NERATINIB
     Indication: BREAST CANCER FEMALE
     Dosage: 120 MG (3 TABLETS), DAILY
     Route: 048
     Dates: start: 20200220, end: 2020
  4. TAMOXIFEN CITRATE. [Concomitant]
     Active Substance: TAMOXIFEN CITRATE
     Indication: PRODUCT USED FOR UNKNOWN INDICATION

REACTIONS (8)
  - COVID-19 [Unknown]
  - Fatigue [Not Recovered/Not Resolved]
  - Hospitalisation [Unknown]
  - Poor quality sleep [Unknown]
  - Snoring [Unknown]
  - Product dose omission issue [Unknown]
  - Diarrhoea [Recovering/Resolving]
  - Drug titration [Unknown]

NARRATIVE: CASE EVENT DATE: 2020
